FAERS Safety Report 12439633 (Version 2)
Quarter: 2016Q3

REPORT INFORMATION
  Report Type: Spontaneous
  Country: US (occurrence: US)
  Receive Date: 20160606
  Receipt Date: 20160722
  Transmission Date: 20161109
  Serious: No
  Sender: FDA-Public Use
  Company Number: US-CELGENEUS-USA-2016060205

PATIENT
  Age: 73 Year
  Sex: Male
  Weight: 85.81 kg

DRUGS (2)
  1. REVLIMID [Suspect]
     Active Substance: LENALIDOMIDE
     Indication: PLASMA CELL MYELOMA
     Route: 048
     Dates: start: 20160415
  2. REVLIMID [Suspect]
     Active Substance: LENALIDOMIDE
     Route: 048
     Dates: start: 201606

REACTIONS (4)
  - Weight decreased [Unknown]
  - Gingival pain [Unknown]
  - Dysgeusia [Unknown]
  - Hypophagia [Unknown]

NARRATIVE: CASE EVENT DATE: 20160512
